FAERS Safety Report 7967135-8 (Version None)
Quarter: 2011Q4

REPORT INFORMATION
  Report Type: 
  Country: None (occurrence: None)
  Receive Date: 20111205
  Receipt Date: 20111122
  Transmission Date: 20120403
  Serious: Yes (Hospitalization)
  Sender: FDA-Public Use
  Company Number: TCI2011A04924

PATIENT
  Age: 73 Year
  Sex: Female

DRUGS (3)
  1. METHIMAZOLE [Concomitant]
  2. DISOPYRAMIDE [Suspect]
     Indication: ATRIAL FIBRILLATION
     Dosage: 300 MG (300 MG,  1 D), PER ORAL
     Route: 048
  3. LANSOPRAZOLE [Suspect]
     Indication: GASTROOESOPHAGEAL REFLUX DISEASE
     Dosage: 15 MG (15 MG, 1 D ) PER ORAL
     Route: 048

REACTIONS (4)
  - DRUG INTERACTION [None]
  - RENAL IMPAIRMENT [None]
  - ELECTROCARDIOGRAM QT PROLONGED [None]
  - TORSADE DE POINTES [None]
